FAERS Safety Report 25046034 (Version 1)
Quarter: 2025Q1

REPORT INFORMATION
  Report Type: Spontaneous
  Country: US (occurrence: US)
  Receive Date: 20250306
  Receipt Date: 20250306
  Transmission Date: 20250409
  Serious: No
  Sender: Haleon PLC
  Company Number: US-HALEON-2231534

PATIENT

DRUGS (1)
  1. SENSODYNE NOURISH GENTLY SOOTHING [Suspect]
     Active Substance: POTASSIUM NITRATE\SODIUM FLUORIDE
     Indication: Product used for unknown indication

REACTIONS (2)
  - Tooth erosion [Unknown]
  - Therapeutic response unexpected [Unknown]
